FAERS Safety Report 26162904 (Version 1)
Quarter: 2025Q4

REPORT INFORMATION
  Report Type: Spontaneous
  Country: US (occurrence: US)
  Receive Date: 20251216
  Receipt Date: 20251216
  Transmission Date: 20260118
  Serious: Yes (Hospitalization)
  Sender: MYLAN
  Company Number: US-MYLANLABS-2025M1106425

PATIENT
  Age: 31 Year
  Sex: Male

DRUGS (2)
  1. INDOMETHACIN [Suspect]
     Active Substance: INDOMETHACIN
     Indication: Back pain
     Dosage: UNK UNK, BID
  2. NAPROXEN [Suspect]
     Active Substance: NAPROXEN
     Indication: Back pain
     Dosage: UNK UNK, BID

REACTIONS (2)
  - Glomerulonephritis membranous [Recovering/Resolving]
  - Phospholipase A2 activity increased [Recovering/Resolving]
